FAERS Safety Report 8322891-4 (Version None)
Quarter: 2012Q2

REPORT INFORMATION
  Report Type: 
  Country: None (occurrence: None)
  Receive Date: 20120430
  Receipt Date: 20120420
  Transmission Date: 20120825
  Serious: Yes (Other)
  Sender: FDA-Public Use
  Company Number: CHPA2012US009002

PATIENT
  Age: 86 Year
  Sex: Male

DRUGS (1)
  1. PREVACID 24 HR [Suspect]
     Indication: OESOPHAGEAL IRRITATION
     Dosage: 15 MG, QD
     Route: 048
     Dates: start: 20120101, end: 20120201

REACTIONS (6)
  - ANAL INFLAMMATION [None]
  - PROCTITIS [None]
  - INAPPROPRIATE SCHEDULE OF DRUG ADMINISTRATION [None]
  - FAECES DISCOLOURED [None]
  - OFF LABEL USE [None]
  - ANORECTAL DISCOMFORT [None]
